FAERS Safety Report 16302264 (Version 3)
Quarter: 2019Q2

REPORT INFORMATION
  Report Type: Report from Study
  Country: None (occurrence: US)
  Receive Date: 20190512
  Receipt Date: 20190626
  Transmission Date: 20190711
  Serious: Yes (Hospitalization, Other)
  Sender: FDA-Public Use
  Company Number: US-ABBVIE-19K-163-2778760-00

PATIENT
  Age: 57 Year
  Sex: Male

DRUGS (3)
  1. HUMIRA [Suspect]
     Active Substance: ADALIMUMAB
     Indication: OSTEOARTHRITIS
     Route: 058
     Dates: start: 2019, end: 20190605
  2. HUMIRA [Suspect]
     Active Substance: ADALIMUMAB
     Indication: PSORIATIC ARTHROPATHY
     Route: 058
     Dates: start: 20180904, end: 201901
  3. HUMIRA [Suspect]
     Active Substance: ADALIMUMAB
     Indication: PSORIASIS

REACTIONS (6)
  - Postoperative thrombosis [Not Recovered/Not Resolved]
  - Post procedural pulmonary embolism [Unknown]
  - Psoriasis [Unknown]
  - Cerebrovascular accident [Recovered/Resolved]
  - Peripheral swelling [Unknown]
  - Spinal operation [Unknown]

NARRATIVE: CASE EVENT DATE: 2019
